FAERS Safety Report 8164455-1 (Version None)
Quarter: 2012Q1

REPORT INFORMATION
  Report Type: 
  Country: None (occurrence: None)
  Receive Date: 20120224
  Receipt Date: 20120216
  Transmission Date: 20120608
  Serious: Yes (Hospitalization, Other)
  Sender: FDA-Public Use
  Company Number: US-ABBOTT-12P-163-0905991-00

PATIENT
  Sex: Male

DRUGS (3)
  1. STEROID CREAM [Concomitant]
     Indication: PRODUCT USED FOR UNKNOWN INDICATION
  2. HUMIRA [Suspect]
     Indication: PSORIASIS
     Dates: start: 20111001, end: 20120204
  3. SHAMPOO [Concomitant]
     Indication: PSORIASIS

REACTIONS (3)
  - CHILLS [None]
  - ABDOMINAL PAIN UPPER [None]
  - PANCREATITIS [None]
